FAERS Safety Report 4871073-7 (Version None)
Quarter: 2006Q1

REPORT INFORMATION
  Report Type: 
  Country: None (occurrence: None)
  Receive Date: 20060103
  Receipt Date: 20051208
  Transmission Date: 20060701
  Serious: Yes (Death)
  Sender: FDA-Public Use
  Company Number: NL-AVENTIS-200520819GDDC

PATIENT
  Age: 77 Year
  Sex: Female

DRUGS (8)
  1. LANTUS [Suspect]
     Route: 058
     Dates: start: 20051117, end: 20051118
  2. BARNIDIPINE [Concomitant]
  3. EPROSARTAN [Concomitant]
  4. FUROSEMIDE [Concomitant]
  5. ENALAPRIL [Concomitant]
  6. ISOSORBIDE MONONITRATE [Concomitant]
  7. CARBASALATE CALCIUM [Concomitant]
  8. SIMVASTATIN [Concomitant]

REACTIONS (6)
  - CARDIAC DISORDER [None]
  - CARDIAC FAILURE [None]
  - FEELING ABNORMAL [None]
  - HYPERSENSITIVITY [None]
  - MALAISE [None]
  - TACHYCARDIA [None]
